FAERS Safety Report 10565312 (Version 1)
Quarter: 2014Q4

REPORT INFORMATION
  Report Type: Spontaneous
  Country: US (occurrence: None)
  Receive Date: 20141104
  Receipt Date: 20141104
  Transmission Date: 20150529
  Serious: Yes (Hospitalization)
  Sender: FDA-Public Use
  Company Number: None

PATIENT
  Age: 59 Year
  Sex: Female
  Weight: 60 kg

DRUGS (21)
  1. SIMEPREVIR [Suspect]
     Active Substance: SIMEPREVIR
     Indication: HEPATITIS C
     Route: 048
     Dates: start: 20140701, end: 20140923
  2. PROAIR HFA [Concomitant]
     Active Substance: ALBUTEROL SULFATE
  3. NEXIUM [Concomitant]
     Active Substance: ESOMEPRAZOLE MAGNESIUM
  4. CHRONULAC [Concomitant]
     Active Substance: LACTULOSE
  5. XIFAXAN [Concomitant]
     Active Substance: RIFAXIMIN
  6. SPIRIVA [Concomitant]
     Active Substance: TIOTROPIUM BROMIDE MONOHYDRATE
  7. SOFOSBUVIR [Suspect]
     Active Substance: SOFOSBUVIR
     Indication: HEPATITIS C
     Route: 048
     Dates: start: 20140701, end: 20140923
  8. PROAIR HFA [Concomitant]
     Active Substance: ALBUTEROL SULFATE
  9. WELLBUTRIN SR [Concomitant]
     Active Substance: BUPROPION HYDROCHLORIDE
  10. ALDACTONE [Concomitant]
     Active Substance: SPIRONOLACTONE
  11. RIBAVIRIN. [Suspect]
     Active Substance: RIBAVIRIN
     Indication: HEPATITIS C
     Route: 048
     Dates: start: 20140701, end: 20140715
  12. LASIX [Concomitant]
     Active Substance: FUROSEMIDE
  13. ARTIFICIAL SALIVA [Concomitant]
  14. KLOR-CON [Concomitant]
     Active Substance: POTASSIUM CHLORIDE
  15. ENSURE IMMUNE HEALTH [Concomitant]
  16. K-DUR [Concomitant]
     Active Substance: POTASSIUM CHLORIDE
  17. FLAXSEED [Concomitant]
     Active Substance: FLAX SEED
  18. DOLOPHINE [Concomitant]
     Active Substance: METHADONE HYDROCHLORIDE
  19. RIBAVIRIN. [Suspect]
     Active Substance: RIBAVIRIN
     Indication: HEPATITIS C
     Route: 048
     Dates: start: 20140701, end: 20140715
  20. BUSPAR [Concomitant]
     Active Substance: BUSPIRONE HYDROCHLORIDE
  21. CALCIUM CARBONATE. [Concomitant]
     Active Substance: CALCIUM CARBONATE

REACTIONS (2)
  - Treatment noncompliance [None]
  - Hepatic encephalopathy [None]

NARRATIVE: CASE EVENT DATE: 20140908
